FAERS Safety Report 25030014 (Version 1)
Quarter: 2025Q1

REPORT INFORMATION
  Report Type: Report from Study
  Country: US (occurrence: US)
  Receive Date: 20250303
  Receipt Date: 20250303
  Transmission Date: 20250408
  Serious: Yes (Hospitalization, Other)
  Sender: GILEAD
  Company Number: US-GILEAD-2025-0705808

PATIENT
  Age: 15 Year
  Sex: Female

DRUGS (6)
  1. AMBRISENTAN [Suspect]
     Active Substance: AMBRISENTAN
     Indication: Product used for unknown indication
     Dosage: 10 MG, QD
     Route: 065
     Dates: start: 20240308
  2. ASPIRIN [Concomitant]
     Active Substance: ASPIRIN
  3. SIMVASTATIN [Concomitant]
     Active Substance: SIMVASTATIN
  4. UPTRAVI [Concomitant]
     Active Substance: SELEXIPAG
  5. ORENITRAM [Concomitant]
     Active Substance: TREPROSTINIL
  6. AMOXICILLIN [Concomitant]
     Active Substance: AMOXICILLIN

REACTIONS (3)
  - Pneumonia bacterial [Unknown]
  - Respiratory syncytial virus infection [Unknown]
  - Product use issue [Not Recovered/Not Resolved]

NARRATIVE: CASE EVENT DATE: 20250203
